FAERS Safety Report 8428644-0 (Version None)
Quarter: 2012Q2

REPORT INFORMATION
  Report Type: 
  Country: None (occurrence: None)
  Receive Date: 20120606
  Receipt Date: 20120606
  Transmission Date: 20120825
  Serious: Yes (Hospitalization)
  Sender: FDA-Public Use
  Company Number: None

PATIENT
  Sex: Male
  Weight: 70 kg

DRUGS (1)
  1. BENZOCAINE HURRICAINE SPRAY [Suspect]
     Indication: GASTROINTESTINAL TUBE INSERTION
     Dosage: 1 SPRAY X1 TOPICAL TO BACK OF THROAT
     Route: 061
     Dates: start: 20120506

REACTIONS (1)
  - OXYGEN SATURATION DECREASED [None]
